FAERS Safety Report 8993091 (Version 2)
Quarter: 2013Q1

REPORT INFORMATION
  Report Type: Report from Study
  Country: US (occurrence: US)
  Receive Date: 20130102
  Receipt Date: 20130103
  Transmission Date: 20140127
  Serious: Yes (Other)
  Sender: FDA-Public Use
  Company Number: US-JNJFOC-20121211303

PATIENT
  Sex: Female
  Weight: 76.2 kg

DRUGS (11)
  1. REMICADE [Suspect]
     Indication: PSORIATIC ARTHROPATHY
     Dosage: FREQUENCY EVERY 6-8 WEEKS, STARTED ABOUT 15 YEARS AGO
     Route: 042
     Dates: start: 1997, end: 2010
  2. PROTONIX [Concomitant]
     Indication: GASTROOESOPHAGEAL REFLUX DISEASE
     Route: 065
  3. AMLODIPINE / BENAZEPRIL [Concomitant]
     Indication: HYPERTENSION
     Dosage: 10/20 MG
     Route: 048
  4. FOLIC ACID [Concomitant]
     Route: 065
  5. METHOTREXATE [Concomitant]
     Route: 048
  6. HYDROCORTISONE [Concomitant]
     Indication: PRURITUS
     Route: 065
  7. COMPAZINE [Concomitant]
     Indication: NAUSEA
     Route: 048
  8. NUVIGIL [Concomitant]
     Indication: FATIGUE
     Route: 048
  9. OPANA [Concomitant]
     Indication: PAIN
     Route: 048
  10. HYTRIN [Concomitant]
     Indication: HYPERHIDROSIS
     Route: 048
  11. NUCYNTA [Concomitant]
     Indication: PAIN
     Route: 048

REACTIONS (7)
  - Chronic lymphocytic leukaemia [Not Recovered/Not Resolved]
  - Lymphoma [Not Recovered/Not Resolved]
  - Drug effect decreased [Recovered/Resolved]
  - Arthropathy [Not Recovered/Not Resolved]
  - Immune system disorder [Unknown]
  - Upper respiratory tract infection [Unknown]
  - Psoriatic arthropathy [Unknown]
